FAERS Safety Report 6257118-0 (Version None)
Quarter: 2009Q3

REPORT INFORMATION
  Report Type: 
  Country: None (occurrence: None)
  Receive Date: 20090706
  Receipt Date: 20090626
  Transmission Date: 20100115
  Serious: Yes (Hospitalization)
  Sender: FDA-Public Use
  Company Number: B0581835A

PATIENT
  Age: 28 Year
  Sex: Female

DRUGS (4)
  1. KIVEXA [Suspect]
     Indication: DRUG USE FOR UNKNOWN INDICATION
     Dosage: 600MG UNKNOWN
     Route: 065
  2. FLUCONAZOLE [Suspect]
     Indication: DRUG USE FOR UNKNOWN INDICATION
     Route: 065
  3. NORVIR [Suspect]
     Indication: DRUG USE FOR UNKNOWN INDICATION
     Dosage: 100MG UNKNOWN
     Route: 065
  4. PREZISTA [Suspect]
     Indication: DRUG USE FOR UNKNOWN INDICATION
     Dosage: 400MG UNKNOWN
     Route: 065

REACTIONS (5)
  - DRUG ERUPTION [None]
  - EOSINOPHILIA [None]
  - NONSPECIFIC REACTION [None]
  - PYREXIA [None]
  - RASH [None]
